FAERS Safety Report 7113740-0 (Version None)
Quarter: 2010Q4

REPORT INFORMATION
  Report Type: 
  Country: None (occurrence: None)
  Receive Date: 20101119
  Receipt Date: 20101110
  Transmission Date: 20110411
  Serious: Yes (Death, Life-Threatening, Hospitalization, Other)
  Sender: FDA-Public Use
  Company Number: US-GENZYME-CAMP-1001033

PATIENT
  Age: 32 Year
  Sex: Female
  Weight: 85.2 kg

DRUGS (18)
  1. CAMPATH [Suspect]
     Indication: ACUTE LYMPHOCYTIC LEUKAEMIA
     Dosage: 5 MG, ON DAYS 1, 4, AND 7 OF A 10 DAY CYCLE
     Route: 058
     Dates: start: 20100902, end: 20100912
  2. METHOTREXATE [Suspect]
     Indication: ACUTE LYMPHOCYTIC LEUKAEMIA
     Dosage: 100 MG/M2, ON DAY 1 OF EACH 10 DAY CYCLE- INCREASED BY 50% EACH CYCLE TO MAX 225 MG/M2
     Route: 042
     Dates: start: 20100902, end: 20100912
  3. VINCRISTINE [Suspect]
     Indication: ACUTE LYMPHOCYTIC LEUKAEMIA
     Dosage: 2 MG, DAY 2 OF EACH 10 DAY CYCLE
     Route: 042
     Dates: start: 20100903, end: 20100913
  4. ELSPAR [Suspect]
     Indication: ACUTE LYMPHOCYTIC LEUKAEMIA
     Dosage: 500 IU/KG, ON DAY 2 OF EACH 10 DAY CYCLE
     Route: 030
     Dates: start: 20100903, end: 20100913
  5. DEXAMETHASONE [Suspect]
     Indication: ACUTE LYMPHOCYTIC LEUKAEMIA
     Dosage: 6 MG/M2, QD ON DAYS 1 THRU 10 OF EACH CYCLE
     Route: 048
     Dates: start: 20100902, end: 20100921
  6. ANTINEOPLASTIC AGENTS [Concomitant]
     Indication: PRODUCT USED FOR UNKNOWN INDICATION
     Dosage: UNK
     Dates: start: 20090101
  7. CYCLOPHOSPHAMIDE [Concomitant]
     Indication: PRODUCT USED FOR UNKNOWN INDICATION
     Dosage: UNK
     Route: 065
     Dates: end: 20090801
  8. VINCRISTINE [Concomitant]
     Indication: PRODUCT USED FOR UNKNOWN INDICATION
     Dosage: UNK
     Route: 065
     Dates: end: 20090801
  9. DOXORUBICIN HCL [Concomitant]
     Indication: PRODUCT USED FOR UNKNOWN INDICATION
     Dosage: UNK
     Route: 065
     Dates: end: 20090801
  10. DEXAMETHASONE [Concomitant]
     Indication: PRODUCT USED FOR UNKNOWN INDICATION
     Dosage: UNK
     Route: 065
     Dates: end: 20090801
  11. IMMUNE GLOBULIN NOS [Concomitant]
     Indication: PRODUCT USED FOR UNKNOWN INDICATION
     Dosage: UNK
     Route: 065
     Dates: start: 20090701, end: 20090701
  12. INSULIN [Concomitant]
     Indication: PRODUCT USED FOR UNKNOWN INDICATION
     Dosage: UNK
     Route: 065
  13. MEGACE [Concomitant]
     Indication: PRODUCT USED FOR UNKNOWN INDICATION
     Dosage: 40 MG, UNK
     Route: 065
  14. DEXAMETHASONE [Concomitant]
     Dosage: UNK
     Route: 065
  15. ONDANSETRON [Concomitant]
     Indication: PRODUCT USED FOR UNKNOWN INDICATION
     Dosage: 8 MG, PRN
     Route: 065
  16. BACTRIM [Concomitant]
     Indication: PRODUCT USED FOR UNKNOWN INDICATION
     Dosage: UNK
     Route: 065
  17. FAMCICLOVIR [Concomitant]
     Indication: PRODUCT USED FOR UNKNOWN INDICATION
     Dosage: 500 MG, UNK
     Route: 065
  18. COMPAZINE [Concomitant]
     Indication: PRODUCT USED FOR UNKNOWN INDICATION
     Dosage: 10 MG, PRN
     Route: 065

REACTIONS (8)
  - CEREBRAL HAEMORRHAGE [None]
  - MULTI-ORGAN FAILURE [None]
  - MYOCARDIAL INFARCTION [None]
  - MYOSITIS [None]
  - PLATELET DISORDER [None]
  - PNEUMONIA [None]
  - SYSTEMIC MYCOSIS [None]
  - WHITE BLOOD CELL COUNT ABNORMAL [None]
